FAERS Safety Report 12917292 (Version 3)
Quarter: 2017Q1

REPORT INFORMATION
  Report Type: Report from Study
  Country: IT (occurrence: IT)
  Receive Date: 20161107
  Receipt Date: 20170131
  Transmission Date: 20170428
  Serious: Yes (Hospitalization, Other)
  Sender: FDA-Public Use
  Company Number: IT-BRISTOL-MYERS SQUIBB COMPANY-BMS-2016-092523

PATIENT
  Age: 74 Year
  Sex: Female

DRUGS (9)
  1. NIVOLUMAB [Suspect]
     Active Substance: NIVOLUMAB
     Indication: NON-SMALL CELL LUNG CANCER
     Dosage: 3 MG/KG, UNK
     Route: 042
     Dates: start: 20151113, end: 20151202
  2. DELTACORTENE [Concomitant]
     Active Substance: PREDNISONE
     Indication: PRODUCT USED FOR UNKNOWN INDICATION
     Dosage: 1 TAB, QD
     Route: 065
  3. ORAMORPH [Concomitant]
     Active Substance: MORPHINE SULFATE
     Indication: PRODUCT USED FOR UNKNOWN INDICATION
     Dosage: 8 GTT, UNK
     Route: 065
  4. DUROGESIC [Concomitant]
     Active Substance: FENTANYL
     Indication: PRODUCT USED FOR UNKNOWN INDICATION
     Dosage: 50 ?G, UNK
     Route: 065
  5. LYRICA [Concomitant]
     Active Substance: PREGABALIN
     Indication: PRODUCT USED FOR UNKNOWN INDICATION
     Dosage: 1 TAB, QD
     Route: 065
  6. PARACETAMOL [Concomitant]
     Active Substance: ACETAMINOPHEN
     Indication: PRODUCT USED FOR UNKNOWN INDICATION
     Dosage: 1 TAB, QD
     Route: 065
  7. NIVOLUMAB [Suspect]
     Active Substance: NIVOLUMAB
     Indication: LUNG ADENOCARCINOMA
     Dosage: 3 MG/KG, UNK
     Route: 042
     Dates: start: 20150212
  8. SUMMA [Concomitant]
     Indication: PRODUCT USED FOR UNKNOWN INDICATION
     Dosage: 1 TAB, QD
     Route: 065
  9. CARDURA [Concomitant]
     Active Substance: DOXAZOSIN MESYLATE
     Indication: PRODUCT USED FOR UNKNOWN INDICATION
     Route: 065

REACTIONS (7)
  - Transaminases increased [Unknown]
  - Cardiac failure [Unknown]
  - Malignant neoplasm progression [Unknown]
  - Pulmonary hypertension [Unknown]
  - Acute respiratory failure [Unknown]
  - Asthenia [Unknown]
  - Blood creatinine increased [Unknown]

NARRATIVE: CASE EVENT DATE: 20151216
